FAERS Safety Report 20502952 (Version 1)
Quarter: 2022Q1

REPORT INFORMATION
  Report Type: Spontaneous
  Country: US (occurrence: US)
  Receive Date: 20220222
  Receipt Date: 20220222
  Transmission Date: 20220424
  Serious: No
  Sender: FDA-Public Use
  Company Number: US-ORGANON-O2202USA001019

PATIENT
  Age: 65 Year
  Sex: Female

DRUGS (6)
  1. ELOCON [Suspect]
     Active Substance: MOMETASONE FUROATE
     Indication: Rash
     Dosage: UNK
     Route: 061
  2. LORATADINE [Suspect]
     Active Substance: LORATADINE
     Indication: Rash
     Dosage: UNK
  3. CETIRIZINE [Suspect]
     Active Substance: CETIRIZINE HYDROCHLORIDE
     Indication: Rash
     Dosage: UNK
  4. PREDNISONE [Concomitant]
     Active Substance: PREDNISONE
     Indication: Rash
     Dosage: UNK, FORMULATION REPORTED AS TAPER
  5. PREDNISONE [Concomitant]
     Active Substance: PREDNISONE
     Dosage: UNK, DECREASING DOSES
  6. PREDNISONE [Concomitant]
     Active Substance: PREDNISONE
     Dosage: 50 MILLIGRAM/DAY

REACTIONS (1)
  - Drug ineffective [Unknown]
